FAERS Safety Report 4300877-4 (Version None)
Quarter: 2004Q1

REPORT INFORMATION
  Report Type: 
  Country: None (occurrence: None)
  Receive Date: 20040220
  Receipt Date: 20030411
  Transmission Date: 20041129
  Serious: Yes (Hospitalization)
  Sender: FDA-Public Use
  Company Number: WAES 0304USA01361

PATIENT
  Age: 45 Year
  Sex: Female
  Weight: 89 kg

DRUGS (3)
  1. [THERAPY UNSPECIFIED] [Concomitant]
     Dates: start: 19970207
  2. DIURETIC (UNSPECIFIED) [Concomitant]
     Indication: HYPERTENSION
     Dates: start: 19970207
  3. VIOXX [Suspect]
     Indication: ARTHRITIS
     Route: 048
     Dates: start: 20000601, end: 20001201

REACTIONS (19)
  - ANGINA PECTORIS [None]
  - ARTHROPATHY [None]
  - BACK INJURY [None]
  - BACK PAIN [None]
  - DEPRESSION [None]
  - DYSLIPIDAEMIA [None]
  - FALL [None]
  - FIBROADENOMA OF BREAST [None]
  - GALACTORRHOEA [None]
  - INJURY [None]
  - INTERVERTEBRAL DISC DEGENERATION [None]
  - JOINT SPRAIN [None]
  - LIVER FUNCTION TEST ABNORMAL [None]
  - LUMBAR RADICULOPATHY [None]
  - NEPHROLITHIASIS [None]
  - OEDEMA PERIPHERAL [None]
  - OVERDOSE [None]
  - PAIN [None]
  - SPONDYLOSIS [None]
